FAERS Safety Report 11993557 (Version 4)
Quarter: 2016Q2

REPORT INFORMATION
  Report Type: Spontaneous
  Country: US (occurrence: US)
  Receive Date: 20160203
  Receipt Date: 20160516
  Transmission Date: 20160815
  Serious: Yes (Hospitalization)
  Sender: FDA-Public Use
  Company Number: US-PFIZER INC-2016018268

PATIENT
  Age: 78 Year
  Sex: Female

DRUGS (10)
  1. CYMBALTA [Suspect]
     Active Substance: DULOXETINE HYDROCHLORIDE
     Indication: LIMB DISCOMFORT
     Dosage: 60 MG, 1X/DAY
     Route: 048
     Dates: start: 20110915
  2. CYMBALTA [Suspect]
     Active Substance: DULOXETINE HYDROCHLORIDE
     Indication: BACK PAIN
  3. LORTAB [Suspect]
     Active Substance: ACETAMINOPHEN\HYDROCODONE BITARTRATE
     Indication: BACK DISORDER
     Dosage: 10 MG, 2X/DAY
  4. PROLIA [Concomitant]
     Active Substance: DENOSUMAB
     Dosage: 60 MG/ML, Q6 MONTHS
     Route: 058
  5. DULOXETINE. [Concomitant]
     Active Substance: DULOXETINE
     Dosage: 60 MG, 1X/DAY
     Route: 048
     Dates: start: 20160226
  6. GABAPENTIN. [Suspect]
     Active Substance: GABAPENTIN
     Indication: LIMB DISCOMFORT
     Dosage: 600 MG, 2X/DAY
     Route: 048
  7. LOSARTAN POTASSIUM. [Suspect]
     Active Substance: LOSARTAN POTASSIUM
     Indication: BLOOD PRESSURE ABNORMAL
     Dosage: 100 MG, 1X/DAY
     Route: 048
     Dates: start: 20141022
  8. CYANOCOBALAMIN. [Concomitant]
     Active Substance: CYANOCOBALAMIN
     Dosage: 1 ML, MONTHLY (1000 MCG/ML INJECTION SOLUTION)
     Route: 030
     Dates: start: 20151012
  9. NORCO [Concomitant]
     Active Substance: ACETAMINOPHEN\HYDROCODONE BITARTRATE
     Indication: PAIN
     Dosage: ONE TID PRN (HYDROCODONE: 10MG; PARACETAMOL: 325MG)
     Route: 048
     Dates: start: 20160329
  10. CYMBALTA [Suspect]
     Active Substance: DULOXETINE HYDROCHLORIDE
     Indication: DEPRESSION

REACTIONS (10)
  - Product use issue [Not Recovered/Not Resolved]
  - Pruritus [Not Recovered/Not Resolved]
  - Tremor [Not Recovered/Not Resolved]
  - Fatigue [Not Recovered/Not Resolved]
  - Skin lesion [Not Recovered/Not Resolved]
  - Ear pain [Not Recovered/Not Resolved]
  - Speech disorder [Not Recovered/Not Resolved]
  - Back pain [Not Recovered/Not Resolved]
  - Jaw disorder [Not Recovered/Not Resolved]
  - Pain of skin [Not Recovered/Not Resolved]

NARRATIVE: CASE EVENT DATE: 201508
